FAERS Safety Report 23830935 (Version 2)
Quarter: 2025Q3

REPORT INFORMATION
  Report Type: Report from Study
  Country: BR (occurrence: BR)
  Receive Date: 20240508
  Receipt Date: 20250829
  Transmission Date: 20251021
  Serious: Yes (Hospitalization, Other)
  Sender: JOHNSON AND JOHNSON
  Company Number: BR-JNJFOC-20240502164

PATIENT
  Age: 37 Year
  Sex: Male
  Weight: 85 kg

DRUGS (3)
  1. INFLIXIMAB [Suspect]
     Active Substance: INFLIXIMAB
     Indication: Rheumatoid arthritis
     Route: 041
     Dates: start: 2023, end: 202402
  2. INFLIXIMAB [Suspect]
     Active Substance: INFLIXIMAB
     Route: 041
     Dates: start: 2023, end: 202402
  3. INFLIXIMAB [Suspect]
     Active Substance: INFLIXIMAB
     Route: 041

REACTIONS (7)
  - Dengue haemorrhagic fever [Unknown]
  - Dengue fever [Not Recovered/Not Resolved]
  - Osteoarthritis [Unknown]
  - Rheumatoid arthritis [Unknown]
  - Decreased immune responsiveness [Unknown]
  - Off label use [Unknown]
  - Drug ineffective [Unknown]

NARRATIVE: CASE EVENT DATE: 20240301
